FAERS Safety Report 6175260-X (Version None)
Quarter: 2009Q2

REPORT INFORMATION
  Report Type: 
  Country: None (occurrence: None)
  Receive Date: 20090430
  Receipt Date: 20090203
  Transmission Date: 20091009
  Serious: No
  Sender: FDA-Public Use
  Company Number: US-ASTRAZENECA-2009UW03216

PATIENT
  Age: 63 Year
  Sex: Female
  Weight: 77.1 kg

DRUGS (7)
  1. NEXIUM [Suspect]
     Route: 048
     Dates: start: 20050101
  2. TAPAZOLE [Concomitant]
  3. TOPROL-XL [Concomitant]
  4. ROBAXIN [Concomitant]
  5. ESTRADIOL [Concomitant]
  6. CALTRATE [Concomitant]
  7. TYLENOL [Concomitant]

REACTIONS (3)
  - ALOPECIA [None]
  - HYPERTHYROIDISM [None]
  - MUSCLE SPASMS [None]
